FAERS Safety Report 15626817 (Version 2)
Quarter: 2024Q2

REPORT INFORMATION
  Report Type: Spontaneous
  Country: DK (occurrence: DK)
  Receive Date: 20181116
  Receipt Date: 20240516
  Transmission Date: 20240716
  Serious: Yes (Hospitalization)
  Sender: FDA-Public Use
  Company Number: DK-NALPROPION PHARMACEUTICALS INC.-2018-005995

PATIENT
  Age: 71 Year
  Sex: Female
  Weight: 110 kg

DRUGS (3)
  1. BUPROPION HYDROCHLORIDE\NALTREXONE HYDROCHLORIDE [Suspect]
     Active Substance: BUPROPION HYDROCHLORIDE\NALTREXONE HYDROCHLORIDE
     Indication: Obesity
     Dosage: STRENGTH: 8 MG/90 MG, 1 DF 1 DAY
     Route: 048
     Dates: start: 20181028
  2. METHADONE [Interacting]
     Active Substance: METHADONE HYDROCHLORIDE
     Indication: Pain
     Dosage: POTENCY: 5 MG
     Route: 048
     Dates: start: 20140722
  3. TRAMADOL [Concomitant]
     Active Substance: TRAMADOL\TRAMADOL HYDROCHLORIDE
     Indication: Pain
     Dosage: POTENCY: 200 MG
     Route: 048
     Dates: start: 20180417

REACTIONS (5)
  - Extrapyramidal disorder [Unknown]
  - Muscle spasms [Unknown]
  - Contraindicated product administered [Unknown]
  - Drug interaction [Unknown]
  - Lethargy [Unknown]

NARRATIVE: CASE EVENT DATE: 20181028
